FAERS Safety Report 4451139-6 (Version None)
Quarter: 2004Q3

REPORT INFORMATION
  Report Type: 
  Country: None (occurrence: None)
  Receive Date: 20040913
  Receipt Date: 20040616
  Transmission Date: 20050211
  Serious: No
  Sender: FDA-Public Use
  Company Number: 2004-BP-04779BP(0)

PATIENT
  Age: 69 Year
  Sex: Male

DRUGS (3)
  1. SPIRIVA [Suspect]
     Indication: CHRONIC OBSTRUCTIVE AIRWAYS DISEASE
     Dosage: 18 MCG (18 MCG,1 OD) (1 DOSE ONLY), IH
     Dates: start: 20040610, end: 20040610
  2. PROVENTIL (SALBUTAMOL SULFATE) [Concomitant]
  3. FLOVENT (FLUTICASON PROPIONATE) [Concomitant]

REACTIONS (3)
  - BLOOD PRESSURE DECREASED [None]
  - FEELING ABNORMAL [None]
  - HEART RATE INCREASED [None]
